FAERS Safety Report 9025583 (Version 1)
Quarter: 2013Q1

REPORT INFORMATION
  Report Type: Spontaneous
  Country: AU (occurrence: AU)
  Receive Date: 20130122
  Receipt Date: 20130122
  Transmission Date: 20140127
  Serious: Yes (Hospitalization)
  Sender: FDA-Public Use
  Company Number: AU-ROCHE-1181175

PATIENT
  Age: 94 Year
  Sex: Female

DRUGS (17)
  1. CEFTRIAXONE [Suspect]
     Indication: LOWER RESPIRATORY TRACT INFECTION
     Route: 042
     Dates: start: 20120915, end: 20120919
  2. AZITHROMYCIN [Suspect]
     Indication: LOWER RESPIRATORY TRACT INFECTION
     Route: 065
     Dates: start: 20120915, end: 20120919
  3. ATORVASTATIN [Concomitant]
  4. CALTRATE WITH VITAMIN D [Concomitant]
  5. DOCUSATE SODIUM/SENNOSIDES [Concomitant]
  6. FISH OIL [Concomitant]
  7. FLUTICASONE PROPIONATE/SALMETEROL XINAFOATE [Concomitant]
  8. FRUSEMIDE [Concomitant]
  9. NITRAZEPAM [Concomitant]
  10. OMEPRAZOLE [Concomitant]
  11. SALBUTAMOL [Concomitant]
  12. SORBITOL [Concomitant]
  13. SYMBICORT [Concomitant]
  14. TERBUTALINE SULFATE [Concomitant]
  15. THYROXINE SODIUM [Concomitant]
  16. TIOTROPIUM [Concomitant]
  17. TRIAMCINOLONE [Concomitant]

REACTIONS (1)
  - Leukocytoclastic vasculitis [Recovered/Resolved]
